FAERS Safety Report 22383854 (Version 1)
Quarter: 2023Q2

REPORT INFORMATION
  Report Type: Spontaneous
  Country: IT (occurrence: None)
  Receive Date: 20230530
  Receipt Date: 20230530
  Transmission Date: 20230721
  Serious: Yes (Other)
  Sender: FDA-Public Use
  Company Number: 2023A117598

PATIENT
  Age: 90 Year
  Sex: Female

DRUGS (6)
  1. QUETIAPINE [Suspect]
     Active Substance: QUETIAPINE
     Indication: Psychotic disorder
     Dosage: 50 MG 1 TABLET IN THE MORNING, 1 IN THE EVENING
     Route: 048
  2. ESOMEPRAZOLE [Concomitant]
     Active Substance: ESOMEPRAZOLE
     Indication: Gastritis prophylaxis
     Dosage: 20 MG
     Route: 048
  3. ASPIRIN DL-LYSINE [Concomitant]
     Active Substance: ASPIRIN DL-LYSINE
     Indication: Thrombosis prophylaxis
     Dosage: 160 MG
     Route: 048
  4. FOSINOPRIL/IDROCLOROTIAZIDE [Concomitant]
     Indication: Hypertension
     Dosage: 20/12.5 MG32.5MG UNKNOWN
     Route: 048
  5. FUROSEMIDE [Concomitant]
     Active Substance: FUROSEMIDE
     Indication: Diuretic therapy
     Dosage: 12.5 MG12.5MG UNKNOWN
     Route: 048
  6. TAPENTADOLO [Concomitant]
     Indication: Pain
     Dosage: 100 MG TWO TIMES A DAY
     Route: 048

REACTIONS (2)
  - Loss of consciousness [Recovered/Resolved]
  - Sopor [Recovered/Resolved]

NARRATIVE: CASE EVENT DATE: 20230514
